FAERS Safety Report 12640624 (Version 1)
Quarter: 2016Q3

REPORT INFORMATION
  Report Type: Spontaneous
  Country: GB (occurrence: GB)
  Receive Date: 20160810
  Receipt Date: 20160810
  Transmission Date: 20161109
  Serious: Yes (Other)
  Sender: FDA-Public Use
  Company Number: PHFR2016GB006403

PATIENT
  Age: 63 Year
  Sex: Male

DRUGS (1)
  1. CICLOSPORIN [Suspect]
     Active Substance: CYCLOSPORINE
     Indication: PSORIASIS
     Dosage: VARIABLE 100MG BD AND 25MG BD
     Route: 065
     Dates: start: 20140414, end: 201501

REACTIONS (4)
  - Blood creatinine increased [Unknown]
  - Blood pressure increased [Unknown]
  - Gingival bleeding [Unknown]
  - Gingival hypertrophy [Unknown]

NARRATIVE: CASE EVENT DATE: 20140528
